FAERS Safety Report 5148630-6 (Version None)
Quarter: 2006Q4

REPORT INFORMATION
  Report Type: 
  Country: None (occurrence: None)
  Receive Date: 20061107
  Receipt Date: 20060112
  Transmission Date: 20070319
  Serious: Yes (Hospitalization, Other)
  Sender: FDA-Public Use
  Company Number: 011206

PATIENT
  Age: 38 Year
  Sex: Female

DRUGS (2)
  1. LEVOTHYROXINE SODIUM [Suspect]
  2. WARFARIN SODIUM [Suspect]

REACTIONS (1)
  - REACTION TO DRUG EXCIPIENTS [None]
